FAERS Safety Report 5899202-7 (Version None)
Quarter: 2008Q3

REPORT INFORMATION
  Report Type: 
  Country: None (occurrence: None)
  Receive Date: 20080925
  Receipt Date: 20071119
  Transmission Date: 20090109
  Serious: No
  Sender: FDA-Public Use
  Company Number: US-B.I. PHARMACEUTICALS,INC./RIDGEFIELD-2007-BP-26783BP

PATIENT

DRUGS (1)
  1. ATROVENT HFA [Suspect]

REACTIONS (1)
  - DYSPNOEA [None]
